FAERS Safety Report 5732528-6 (Version None)
Quarter: 2008Q2

REPORT INFORMATION
  Report Type: 
  Country: None (occurrence: None)
  Receive Date: 20080506
  Receipt Date: 20080423
  Transmission Date: 20081010
  Serious: Yes (Death)
  Sender: FDA-Public Use
  Company Number: 100#03#2008-02311

PATIENT
  Age: 69 Year
  Sex: Female

DRUGS (12)
  1. PACLITAXEL [Suspect]
     Indication: OVARIAN CANCER
     Dosage: 350 MG
     Route: 042
     Dates: start: 20080410, end: 20080410
  2. ATENOLOL [Concomitant]
  3. DOMPERIDONE (DOMPERIDONE) [Concomitant]
  4. DOXAZOSIN (FUROSEMIDE) [Concomitant]
  5. GLYCERYL TRINITRATE (GLYCERYL TRINITRATE) [Concomitant]
  6. IRBESARTAN [Concomitant]
  7. ISOSORBIDE MONONITRATE [Concomitant]
  8. NICORANDIL (NICORANDIL) [Concomitant]
  9. OMEPRAZOLE [Concomitant]
  10. ACETAMINOPHEN [Concomitant]
  11. QUININE SULPHATE (QUININE) [Concomitant]
  12. SIMVASTATIN [Concomitant]

REACTIONS (1)
  - CARDIO-RESPIRATORY ARREST [None]
